FAERS Safety Report 7752966-X (Version None)
Quarter: 2011Q3

REPORT INFORMATION
  Report Type: 
  Country: None (occurrence: None)
  Receive Date: 20110915
  Receipt Date: 20110914
  Transmission Date: 20111222
  Serious: Yes (Death)
  Sender: FDA-Public Use
  Company Number: AU-B.I. PHARMACEUTICALS,INC./RIDGEFIELD-2011-AU-01018AU

PATIENT
  Sex: Male

DRUGS (4)
  1. SOTALOL HCL [Concomitant]
     Dosage: 160 MG
  2. LASIX [Concomitant]
     Dosage: 80 MG
  3. PRADAXA [Suspect]
     Indication: ATRIAL FIBRILLATION
     Dosage: 220 MG
     Route: 048
     Dates: start: 20110821, end: 20110821
  4. LIPITOR [Concomitant]

REACTIONS (1)
  - PULMONARY EMBOLISM [None]
